FAERS Safety Report 6174887-9 (Version None)
Quarter: 2009Q2

REPORT INFORMATION
  Report Type: 
  Country: None (occurrence: None)
  Receive Date: 20090430
  Receipt Date: 20081212
  Transmission Date: 20091009
  Serious: No
  Sender: FDA-Public Use
  Company Number: US-ASTRAZENECA-2008UW27926

PATIENT
  Age: 697 Month
  Sex: Female

DRUGS (5)
  1. NEXIUM [Suspect]
     Indication: GASTROOESOPHAGEAL REFLUX DISEASE
     Route: 048
     Dates: start: 20030101
  2. DIOVAN HCT [Concomitant]
  3. FOSINOPRIL SODIUM [Concomitant]
  4. METFORMIN HCL [Concomitant]
  5. INSULIN [Concomitant]

REACTIONS (3)
  - ACQUIRED OESOPHAGEAL WEB [None]
  - DIVERTICULITIS [None]
  - HIATUS HERNIA [None]
